FAERS Safety Report 21886533 (Version 2)
Quarter: 2023Q1

REPORT INFORMATION
  Report Type: Spontaneous
  Country: CA (occurrence: CA)
  Receive Date: 20230119
  Receipt Date: 20230209
  Transmission Date: 20230418
  Serious: Yes (Life-Threatening, Hospitalization)
  Sender: FDA-Public Use
  Company Number: CA-TEVA-2023-CA-2845746

PATIENT
  Age: 50 Year
  Sex: Female

DRUGS (8)
  1. METHYLPREDNISOLONE [Suspect]
     Active Substance: METHYLPREDNISOLONE
     Indication: Paraneoplastic dermatomyositis
     Route: 065
  2. PREDNISONE [Suspect]
     Active Substance: PREDNISONE
     Indication: Paraneoplastic dermatomyositis
     Route: 048
  3. CARBOPLATIN [Suspect]
     Active Substance: CARBOPLATIN
     Indication: Paraneoplastic dermatomyositis
     Dosage: AUC 5; TOTAL 3 CYCLES
     Route: 065
  4. PACLITAXEL [Interacting]
     Active Substance: PACLITAXEL
     Indication: Paraneoplastic dermatomyositis
     Route: 065
  5. PACLITAXEL [Interacting]
     Active Substance: PACLITAXEL
     Dosage: DOSAGE ADJUSTED [DETAILS NOT STATED] FOLLOWING INTERACTION
     Route: 065
  6. PHENYTOIN [Interacting]
     Active Substance: PHENYTOIN
     Indication: Partial seizures
     Dosage: LATER THERAPY WAS MODIFIED [DETAILS NOT STATED] AS DRUG-INDUCED ALLERGY WAS PRESUMED
     Route: 065
  7. CARBAMAZEPINE [Concomitant]
     Active Substance: CARBAMAZEPINE
     Indication: Partial seizures
     Dosage: LATER THERAPY WAS MODIFIED [DETAILS NOT STATED] AS DRUG-INDUCED ALLERGY WAS PRESUMED
     Route: 065
  8. CEFAZOLIN [Concomitant]
     Active Substance: CEFAZOLIN
     Indication: Peritonitis bacterial
     Route: 065

REACTIONS (2)
  - Drug ineffective [Unknown]
  - Drug interaction [Unknown]
